FAERS Safety Report 17089860 (Version 10)
Quarter: 2022Q1

REPORT INFORMATION
  Report Type: Report from Study
  Country: US (occurrence: US)
  Receive Date: 20191128
  Receipt Date: 20220202
  Transmission Date: 20220423
  Serious: Yes (Hospitalization, Other)
  Sender: FDA-Public Use
  Company Number: US-NOVARTISPH-NVSC2019US051628

PATIENT
  Age: 48 Year
  Sex: Female

DRUGS (2)
  1. GILENYA [Suspect]
     Active Substance: FINGOLIMOD HYDROCHLORIDE
     Indication: Multiple sclerosis
     Dosage: 0.5 MG, QD
     Route: 048
  2. MAYZENT [Suspect]
     Active Substance: SIPONIMOD
     Indication: Multiple sclerosis
     Dosage: 2 MG, QD, 4 TABLETS OF MAYZENT
     Route: 048
     Dates: start: 202010

REACTIONS (9)
  - Multiple sclerosis relapse [Recovering/Resolving]
  - Movement disorder [Recovering/Resolving]
  - Hypoaesthesia [Unknown]
  - Asthenia [Unknown]
  - Multiple sclerosis [Unknown]
  - Eye inflammation [Unknown]
  - Feeling abnormal [Unknown]
  - Panic attack [Unknown]
  - Weight decreased [Not Recovered/Not Resolved]

NARRATIVE: CASE EVENT DATE: 20210101
